FAERS Safety Report 9509320 (Version 2)
Quarter: 2013Q3

REPORT INFORMATION
  Report Type: Spontaneous
  Country: US (occurrence: US)
  Receive Date: 20130909
  Receipt Date: 20130909
  Transmission Date: 20140515
  Serious: No
  Sender: FDA-Public Use
  Company Number: US-BRISTOL-MYERS SQUIBB COMPANY-17311762

PATIENT
  Age: 64 Year
  Sex: Female
  Weight: 86.17 kg

DRUGS (1)
  1. ABILIFY TABS 10 MG [Suspect]
     Indication: DEPRESSION

REACTIONS (3)
  - Flat affect [Unknown]
  - Drug ineffective [Unknown]
  - Feeling abnormal [Unknown]
